FAERS Safety Report 4455714-4 (Version None)
Quarter: 2004Q3

REPORT INFORMATION
  Report Type: 
  Country: None (occurrence: None)
  Receive Date: 20040917
  Receipt Date: 20070901
  Transmission Date: 20050211
  Serious: Yes (Hospitalization)
  Sender: FDA-Public Use
  Company Number: USA040977121

PATIENT
  Age: 15 Year
  Sex: Female

DRUGS (1)
  1. SYMBYAX [Suspect]
     Dates: start: 20040829, end: 20040829

REACTIONS (7)
  - AGGRESSION [None]
  - DELUSION [None]
  - EYE BURNS [None]
  - HYPOTENSION [None]
  - OVERDOSE [None]
  - PSYCHOTIC DISORDER [None]
  - SELF-MEDICATION [None]
